FAERS Safety Report 5927355-0 (Version None)
Quarter: 2008Q4

REPORT INFORMATION
  Report Type: 
  Country: None (occurrence: None)
  Receive Date: 20081020
  Receipt Date: 20081015
  Transmission Date: 20090506
  Serious: Yes (Hospitalization)
  Sender: FDA-Public Use
  Company Number: WWISSUE-226

PATIENT
  Age: 65 Year
  Sex: Female

DRUGS (1)
  1. CARISOPRODOL [Suspect]
     Indication: MUSCULOSKELETAL PAIN
     Dosage: 350 MG 2X A DAY/ORAL
     Route: 048
     Dates: start: 20080917, end: 20080920

REACTIONS (6)
  - BLOOD POTASSIUM DECREASED [None]
  - DYSSTASIA [None]
  - FALL [None]
  - FATIGUE [None]
  - GAIT DISTURBANCE [None]
  - PARALYSIS [None]
